FAERS Safety Report 22623911 (Version 1)
Quarter: 2023Q2

REPORT INFORMATION
  Report Type: Spontaneous
  Country: US (occurrence: US)
  Receive Date: 20230621
  Receipt Date: 20230621
  Transmission Date: 20230722
  Serious: No
  Sender: FDA-Public Use
  Company Number: US-PROVENTION BIO, INC.-US-PRAG-23-00039

PATIENT
  Age: 47 Year
  Sex: Female

DRUGS (2)
  1. TZIELD [Suspect]
     Active Substance: TEPLIZUMAB-MZWV
     Indication: Diabetes prophylaxis
     Dosage: 2MG/2ML
     Route: 042
     Dates: start: 20230510, end: 20230510
  2. TZIELD [Suspect]
     Active Substance: TEPLIZUMAB-MZWV
     Dosage: 2MG/2ML
     Route: 042
     Dates: start: 20230511, end: 20230511

REACTIONS (4)
  - Infusion site extravasation [Unknown]
  - Rash erythematous [Unknown]
  - Device leakage [Recovered/Resolved]
  - Off label use [Unknown]

NARRATIVE: CASE EVENT DATE: 20230510
